FAERS Safety Report 19842693 (Version 3)
Quarter: 2022Q1

REPORT INFORMATION
  Report Type: Report from Study
  Country: US (occurrence: US)
  Receive Date: 20210916
  Receipt Date: 20220113
  Transmission Date: 20220423
  Serious: Yes (Other)
  Sender: FDA-Public Use
  Company Number: US-GILEAD-2021-0548243

PATIENT
  Age: 60 Year
  Sex: Male

DRUGS (8)
  1. AXICABTAGENE CILOLEUCEL [Suspect]
     Active Substance: AXICABTAGENE CILOLEUCEL
     Indication: B-cell lymphoma
     Dosage: 1 DOSAGE FORM, ONCE; 68
     Route: 042
     Dates: start: 20190819, end: 20190819
  2. FLUDARABINE [Suspect]
     Active Substance: FLUDARABINE PHOSPHATE
     Indication: Bone marrow conditioning regimen
     Dosage: 1 DOSAGE FORM, QD; 30
     Route: 042
     Dates: start: 20190814, end: 20190816
  3. CYCLOPHOSPHAMIDE [Suspect]
     Active Substance: CYCLOPHOSPHAMIDE
     Indication: Bone marrow conditioning regimen
     Dosage: 1 DOSAGE FORM, QD; 500
     Route: 042
     Dates: start: 20190814, end: 20190816
  4. MESNA [Suspect]
     Active Substance: MESNA
     Indication: Prophylaxis
     Dosage: 1 DOSAGE FORM, QD; 500
     Route: 042
     Dates: start: 20190814, end: 20190817
  5. SULFAMETHOXAZOLE\TRIMETHOPRIM [Concomitant]
     Active Substance: SULFAMETHOXAZOLE\TRIMETHOPRIM
     Dosage: UNK
     Dates: start: 20190612
  6. APIXABAN [Concomitant]
     Active Substance: APIXABAN
     Dosage: UNK; 5,MG,TWICE DAILY
     Dates: start: 20190830
  7. VITAMINS [Concomitant]
     Active Substance: VITAMINS
     Dosage: UNK
     Dates: start: 20190910
  8. VALACYCLOVIR [Concomitant]
     Active Substance: VALACYCLOVIR HYDROCHLORIDE
     Dosage: 500,MG,DAILY
     Dates: start: 20190911

REACTIONS (1)
  - Autoimmune disorder [Not Recovered/Not Resolved]

NARRATIVE: CASE EVENT DATE: 20210514
